FAERS Safety Report 11651791 (Version 1)
Quarter: 2015Q4

REPORT INFORMATION
  Report Type: Spontaneous
  Country: FR (occurrence: FR)
  Receive Date: 20151022
  Receipt Date: 20151022
  Transmission Date: 20160304
  Serious: Yes (Life-Threatening, Hospitalization)
  Sender: FDA-Public Use
  Company Number: FR-ASTRAZENECA-2015SF00908

PATIENT
  Age: 475 Month
  Sex: Female

DRUGS (8)
  1. INEXIUM [Suspect]
     Active Substance: ESOMEPRAZOLE
     Indication: CHRONIC GASTRITIS
     Route: 048
     Dates: start: 1995
  2. CERAZETTE [Concomitant]
     Active Substance: DESOGESTREL
     Indication: CONTRACEPTION
     Route: 048
  3. CORTANCYL [Concomitant]
     Active Substance: PREDNISONE
  4. CORTANCYL [Concomitant]
     Active Substance: PREDNISONE
  5. CORTANCYL [Concomitant]
     Active Substance: PREDNISONE
  6. CORTANCYL [Concomitant]
     Active Substance: PREDNISONE
  7. CORTANCYL [Concomitant]
     Active Substance: PREDNISONE
  8. EFFEXOR XR [Concomitant]
     Active Substance: VENLAFAXINE HYDROCHLORIDE
     Route: 048
     Dates: start: 2009

REACTIONS (19)
  - Sjogren^s syndrome [Unknown]
  - Pain [Unknown]
  - Pyrexia [Unknown]
  - Asthenia [Unknown]
  - Weight increased [Unknown]
  - Haematuria [Recovering/Resolving]
  - Sleep disorder due to general medical condition, insomnia type [Unknown]
  - Sinusitis [Unknown]
  - Headache [Unknown]
  - Vomiting [Unknown]
  - Typhoid fever [Unknown]
  - Arthralgia [Unknown]
  - Proteinuria [Recovering/Resolving]
  - Fanconi syndrome [Unknown]
  - Raynaud^s phenomenon [Unknown]
  - Diarrhoea [Unknown]
  - Nausea [Unknown]
  - Depression [Unknown]
  - Tubulointerstitial nephritis [Recovering/Resolving]

NARRATIVE: CASE EVENT DATE: 201502
